FAERS Safety Report 8115920-4 (Version None)
Quarter: 2012Q1

REPORT INFORMATION
  Report Type: 
  Country: None (occurrence: None)
  Receive Date: 20120206
  Receipt Date: 20120201
  Transmission Date: 20120608
  Serious: Yes (Hospitalization)
  Sender: FDA-Public Use
  Company Number: JP-ROCHE-803014

PATIENT
  Sex: Male
  Weight: 64 kg

DRUGS (5)
  1. AVASTIN [Suspect]
     Indication: RECTAL CANCER
     Dosage: DOSAGE IS UNCERTAIN.
     Route: 041
     Dates: start: 20091007, end: 20100219
  2. LEVOLEUCOVORIN CALCIUM [Suspect]
     Indication: RECTAL CANCER
     Dosage: DOSAGE IS UNCERTAIN.
     Route: 041
     Dates: start: 20091007, end: 20100201
  3. FLUOROURACIL [Suspect]
     Indication: RECTAL CANCER
     Dosage: DOSAGE IS UNCERTAIN.
     Route: 040
     Dates: start: 20091007, end: 20100201
  4. FLUOROURACIL [Suspect]
     Dosage: DOSAGE IS UNCERTAIN.
     Route: 041
     Dates: start: 20091007, end: 20100201
  5. OXALIPLATIN [Suspect]
     Indication: RECTAL CANCER
     Dosage: DOSAGE IS UNCERTAIN.
     Route: 041
     Dates: start: 20091007, end: 20100219

REACTIONS (5)
  - PROTEIN URINE [None]
  - INFECTION [None]
  - SEPSIS [None]
  - THROMBOTIC MICROANGIOPATHY [None]
  - GLUCOSE URINE [None]
